FAERS Safety Report 5100557-1 (Version None)
Quarter: 2006Q3

REPORT INFORMATION
  Report Type: 
  Country: None (occurrence: None)
  Receive Date: 20060909
  Receipt Date: 20060721
  Transmission Date: 20061208
  Serious: Yes (Hospitalization)
  Sender: FDA-Public Use
  Company Number: NL-ABBOTT-06P-114-0338624-00

PATIENT
  Sex: Female

DRUGS (9)
  1. DEPAKINE CHRONOSPHERE [Suspect]
     Indication: EPILEPSY
     Route: 048
     Dates: start: 20060501, end: 20060701
  2. DEPAKINE CHRONOSPHERE [Suspect]
  3. DEPAKINE CHRONOSPHERE [Suspect]
     Dates: end: 20060709
  4. DEPAKINE CHRONOSPHERE [Suspect]
  5. DEPAKINE LIQUID [Suspect]
     Indication: EPILEPSY
     Route: 048
     Dates: end: 20060501
  6. DEPAKINE LIQUID [Suspect]
     Route: 048
     Dates: end: 20060101
  7. DEPAKINE LIQUID [Suspect]
     Dates: start: 20060701
  8. LEVETIRACETAM [Concomitant]
     Indication: EPILEPSY
     Route: 048
  9. UNIDENTIFIED STUDY MEDICATION [Concomitant]
     Indication: DRUG USE FOR UNKNOWN INDICATION

REACTIONS (5)
  - DRUG INEFFECTIVE [None]
  - DRUG LEVEL DECREASED [None]
  - GASTROENTERITIS [None]
  - PNEUMONIA [None]
  - STATUS EPILEPTICUS [None]
